FAERS Safety Report 4842916-8 (Version None)
Quarter: 2005Q4

REPORT INFORMATION
  Report Type: 
  Country: None (occurrence: None)
  Receive Date: 20051130
  Receipt Date: 20051118
  Transmission Date: 20060501
  Serious: Yes (Other)
  Sender: FDA-Public Use
  Company Number: 6018664F

PATIENT
  Sex: Male

DRUGS (3)
  1. NIASPAN [Suspect]
     Dosage: 500 MG QHS PO
     Route: 048
     Dates: start: 20051027
  2. ALMODIPINE [Suspect]
     Indication: HYPERTENSION
  3. CANDESARTAN [Concomitant]

REACTIONS (3)
  - DIZZINESS [None]
  - FALL [None]
  - FLUSHING [None]
